FAERS Safety Report 22251270 (Version 3)
Quarter: 2023Q2

REPORT INFORMATION
  Report Type: Report from Study
  Country: US (occurrence: US)
  Receive Date: 20230425
  Receipt Date: 20230626
  Transmission Date: 20230721
  Serious: Yes (Hospitalization, Other)
  Sender: FDA-Public Use
  Company Number: US-002147023-NVSC2023US092349

PATIENT
  Age: 83 Year
  Sex: Male
  Weight: 81.64 kg

DRUGS (2)
  1. ENTRESTO [Suspect]
     Active Substance: SACUBITRIL\VALSARTAN
     Indication: Product used for unknown indication
     Dosage: UNK
     Route: 065
  2. METOPROLOL [Suspect]
     Active Substance: METOPROLOL
     Indication: Product used for unknown indication
     Dosage: UNK
     Route: 065

REACTIONS (12)
  - Blood loss anaemia [Unknown]
  - Haemoglobin decreased [Unknown]
  - Macular degeneration [Unknown]
  - Internal haemorrhage [Unknown]
  - Dyspnoea [Unknown]
  - Limb discomfort [Unknown]
  - Device occlusion [Unknown]
  - Weight decreased [Unknown]
  - Blood pressure increased [Unknown]
  - Dyspnoea exertional [Unknown]
  - Hypotension [Unknown]
  - Dizziness [Unknown]
